FAERS Safety Report 5975888-3 (Version None)
Quarter: 2008Q4

REPORT INFORMATION
  Report Type: 
  Country: None (occurrence: None)
  Receive Date: 20081202
  Receipt Date: 20081124
  Transmission Date: 20090506
  Serious: Yes (Congenital Anomaly)
  Sender: FDA-Public Use
  Company Number: B0548517A

PATIENT
  Sex: Female

DRUGS (3)
  1. SALMETEROL [Suspect]
     Indication: ASTHMA
  2. FLUTICASONE PROPIONATE [Suspect]
     Indication: ASTHMA
  3. IPRATROPIUM BROMIDE [Suspect]
     Indication: ASTHMA

REACTIONS (6)
  - CONGENITAL CENTRAL NERVOUS SYSTEM ANOMALY [None]
  - CONGENITAL GENITOURINARY ABNORMALITY [None]
  - CONGENITAL MEGAURETER [None]
  - CONGENITAL PYELOCALIECTASIS [None]
  - DRUG EXPOSURE DURING PREGNANCY [None]
  - KIDNEY MALFORMATION [None]
